FAERS Safety Report 13345394 (Version 2)
Quarter: 2025Q4

REPORT INFORMATION
  Report Type: Spontaneous
  Country: EU (occurrence: EU)
  Receive Date: 20170317
  Receipt Date: 20251029
  Transmission Date: 20260119
  Serious: Yes (Other)
  Sender: ALKEM
  Company Number: None

PATIENT
  Age: 54 Year
  Sex: Male

DRUGS (5)
  1. MYCOPHENOLATE MOFETIL [Suspect]
     Active Substance: MYCOPHENOLATE MOFETIL
     Indication: Immunosuppressant drug therapy
     Dosage: UNK
     Route: 065
     Dates: start: 2003
  2. MYCOPHENOLATE MOFETIL [Suspect]
     Active Substance: MYCOPHENOLATE MOFETIL
     Dosage: UNK (MYCOPHENOLATE SODIUM)
     Route: 065
  3. MYCOPHENOLATE MOFETIL [Suspect]
     Active Substance: MYCOPHENOLATE MOFETIL
     Dosage: UNK (RECHALLENGED DOSE)
     Route: 065
  4. TACROLIMUS [Suspect]
     Active Substance: TACROLIMUS
     Indication: Immunosuppressant drug therapy
     Dosage: UNK
     Route: 065
     Dates: start: 2003
  5. AZATHIOPRINE [Suspect]
     Active Substance: AZATHIOPRINE
     Indication: Immunosuppressant drug therapy
     Dosage: 100 MILLIGRAM, QD
     Route: 065

REACTIONS (7)
  - Gastrointestinal necrosis [Unknown]
  - Enterocolitis haemorrhagic [Unknown]
  - Melaena [Unknown]
  - Diarrhoea [Unknown]
  - Abdominal distension [Unknown]
  - Nausea [Unknown]
  - Arthralgia [Unknown]

NARRATIVE: CASE EVENT DATE: 20110101
